FAERS Safety Report 5023922-X (Version None)
Quarter: 2006Q2

REPORT INFORMATION
  Report Type: 
  Country: None (occurrence: None)
  Receive Date: 20060612
  Receipt Date: 20060522
  Transmission Date: 20061013
  Serious: Yes (Life-Threatening, Other)
  Sender: FDA-Public Use
  Company Number: KE-BOEHRINGER INGELHEIM PHARMACEUTICALS, INC.-2006-BP-05851BP

PATIENT
  Sex: Female

DRUGS (3)
  1. VIRAMUNE [Suspect]
     Indication: VERTICAL INFECTION TRANSMISSION
     Dates: start: 20040419, end: 20060116
  2. COMBIVIR [Suspect]
     Indication: VERTICAL INFECTION TRANSMISSION
     Dates: start: 20040419, end: 20060116
  3. COTRIMOZAXOLE [Concomitant]

REACTIONS (1)
  - NEUTROPHIL COUNT DECREASED [None]
